FAERS Safety Report 8691922 (Version 2)
Quarter: 2013Q4

REPORT INFORMATION
  Report Type: Spontaneous
  Country: US (occurrence: US)
  Receive Date: 20120730
  Receipt Date: 20131105
  Transmission Date: 20140711
  Serious: Yes (Hospitalization)
  Sender: FDA-Public Use
  Company Number: US-009507513-1207USA010183

PATIENT
  Age: 52 Year
  Sex: Male

DRUGS (5)
  1. ENALAPRIL MALEATE [Suspect]
     Dosage: 20 MG, QD
     Route: 048
  2. JANUVIA [Suspect]
     Dosage: 100 MG, QD
     Route: 048
  3. METFORMIN [Concomitant]
  4. APROVEL [Concomitant]
  5. QVAR [Concomitant]

REACTIONS (1)
  - Hypersensitivity vasculitis [Unknown]
